FAERS Safety Report 8061155-3 (Version None)
Quarter: 2012Q1

REPORT INFORMATION
  Report Type: 
  Country: None (occurrence: None)
  Receive Date: 20120120
  Receipt Date: 20110607
  Transmission Date: 20120608
  Serious: No
  Sender: FDA-Public Use
  Company Number: US-ALLERGAN-1107732US

PATIENT
  Age: 35 Year
  Sex: Female

DRUGS (1)
  1. RESTASIS [Suspect]
     Indication: DRY EYE
     Dosage: 1 GTT, QHS
     Route: 047
     Dates: start: 20110602, end: 20110602

REACTIONS (3)
  - BLOOD PRESSURE INCREASED [None]
  - PAIN [None]
  - HEADACHE [None]
